FAERS Safety Report 5801119-0 (Version None)
Quarter: 2008Q3

REPORT INFORMATION
  Report Type: 
  Country: None (occurrence: None)
  Receive Date: 20080707
  Receipt Date: 20080623
  Transmission Date: 20090109
  Serious: Yes (Other)
  Sender: FDA-Public Use
  Company Number: PHHY2008ES11834

PATIENT
  Age: 70 Year
  Sex: Male

DRUGS (1)
  1. EXFORGE [Suspect]
     Dosage: 10 MG

REACTIONS (1)
  - PULMONARY OEDEMA [None]
